FAERS Safety Report 8423867 (Version 2)
Quarter: 2013Q1

REPORT INFORMATION
  Report Type: Spontaneous
  Country: DE (occurrence: None)
  Receive Date: 20120213
  Receipt Date: 20130222
  Transmission Date: 20140127
  Serious: Yes (Other)
  Sender: FDA-Public Use
  Company Number: DE-1190233

PATIENT
  Sex: Female

DRUGS (6)
  1. CILOXAN [Suspect]
     Indication: ASTHMA
     Dosage: 15 GTT BID RESPIRATORY (INHALATION), 8 GTT BD RESPIRATORY INHALATION
     Route: 055
     Dates: start: 20120118, end: 20120121
  2. CILOXAN [Suspect]
     Indication: PULMONARY CONGESTION
     Dosage: 15 GTT BID RESPIRATORY (INHALATION), 8 GTT BD RESPIRATORY INHALATION
     Route: 055
     Dates: start: 20120118, end: 20120121
  3. SPIRIVA [Concomitant]
  4. FOSTER [Concomitant]
  5. ATACAND [Concomitant]
  6. PULMICORT RESPULES [Concomitant]

REACTIONS (4)
  - Lung disorder [None]
  - Dyspnoea [None]
  - Incorrect route of drug administration [None]
  - Off label use [None]
